FAERS Safety Report 9525644 (Version 1)
Quarter: 2013Q1

REPORT INFORMATION
  Report Type: Spontaneous
  Country: US (occurrence: None)
  Receive Date: 20130314
  Receipt Date: 20130314
  Transmission Date: 20140127
  Serious: No
  Sender: FDA-Public Use
  Company Number: 1301USA014279

PATIENT
  Sex: Male

DRUGS (3)
  1. RIBAVIRIN (RIBAVIRIN) CAPSULE [Suspect]
     Indication: HEPATITIS C
     Dates: start: 20120601
  2. VICTRELIS (BOCEPREVIR) CAPSULE [Suspect]
     Indication: HEPATITIS C
     Dates: start: 20120629
  3. PEGASYS (PEGINTERFERON ALFA-2A) [Suspect]
     Indication: HEPATITIS C
     Dates: start: 20120601

REACTIONS (2)
  - Rash macular [None]
  - Hair texture abnormal [None]
